FAERS Safety Report 6350782-7 (Version None)
Quarter: 2009Q3

REPORT INFORMATION
  Report Type: 
  Country: None (occurrence: None)
  Receive Date: 20090911
  Receipt Date: 20090622
  Transmission Date: 20100115
  Serious: No
  Sender: FDA-Public Use
  Company Number: US-ABBOTT-07P-163-0369604-00

PATIENT
  Sex: Female
  Weight: 59.02 kg

DRUGS (15)
  1. HUMIRA [Suspect]
     Indication: RHEUMATOID ARTHRITIS
     Route: 058
     Dates: start: 20040101, end: 20040807
  2. HUMIRA [Suspect]
     Route: 058
     Dates: start: 20050601, end: 20060701
  3. HUMIRA [Suspect]
     Route: 058
     Dates: start: 20070521
  4. CALCIUM-SANDOZ [Concomitant]
     Indication: MINERAL SUPPLEMENTATION
     Route: 048
     Dates: start: 20040901, end: 20050801
  5. CALCIUM-SANDOZ [Concomitant]
     Indication: RHEUMATOID ARTHRITIS
     Route: 048
     Dates: start: 20060901
  6. METHOTREXATE [Concomitant]
     Indication: RHEUMATOID ARTHRITIS
     Route: 048
     Dates: start: 20040101, end: 20040301
  7. METHOTREXATE [Concomitant]
     Route: 048
     Dates: start: 20050801, end: 20060301
  8. METHOTREXATE [Concomitant]
     Route: 048
     Dates: start: 20070501
  9. METHYLPREDNISOLONE [Concomitant]
     Indication: RHEUMATOID ARTHRITIS
     Route: 048
     Dates: start: 20050516
  10. METHYLPREDNISOLONE [Concomitant]
     Route: 048
     Dates: start: 20070426
  11. VICODIN [Concomitant]
     Indication: RHEUMATOID ARTHRITIS
     Route: 048
     Dates: start: 20070101
  12. ONDANSETRON [Concomitant]
     Indication: VOMITING IN PREGNANCY
     Dates: start: 20050901, end: 20070401
  13. ONDANSETRON [Concomitant]
     Indication: NAUSEA
  14. VITAMIN TAB [Concomitant]
     Indication: VITAMIN SUPPLEMENTATION
     Route: 048
     Dates: start: 20040901, end: 20050801
  15. VITAMIN TAB [Concomitant]
     Route: 048
     Dates: start: 20060901, end: 20070101

REACTIONS (3)
  - ARTHRALGIA [None]
  - INCORRECT DOSE ADMINISTERED [None]
  - RHEUMATOID ARTHRITIS [None]
